FAERS Safety Report 22217712 (Version 1)
Quarter: 2023Q2

REPORT INFORMATION
  Report Type: Report from Study
  Country: US (occurrence: US)
  Receive Date: 20230417
  Receipt Date: 20230417
  Transmission Date: 20230722
  Serious: Yes (Other)
  Sender: FDA-Public Use
  Company Number: US-ABBVIE-4728366

PATIENT
  Sex: Female

DRUGS (1)
  1. RINVOQ [Suspect]
     Active Substance: UPADACITINIB
     Indication: Product used for unknown indication
     Route: 048

REACTIONS (5)
  - Shoulder arthroplasty [Recovering/Resolving]
  - Burning sensation [Unknown]
  - Paraesthesia [Unknown]
  - Procedural pain [Unknown]
  - Nerve block [Unknown]

NARRATIVE: CASE EVENT DATE: 20230411
